FAERS Safety Report 21457280 (Version 1)
Quarter: 2022Q4

REPORT INFORMATION
  Report Type: Spontaneous
  Country: US (occurrence: None)
  Receive Date: 20221013
  Receipt Date: 20221013
  Transmission Date: 20230113
  Serious: No
  Sender: FDA-Public Use
  Company Number: None

PATIENT
  Age: 35 Year
  Weight: 63 kg

DRUGS (1)
  1. BACTERIOSTATIC SODIUM CHLORIDE [Suspect]
     Active Substance: SODIUM CHLORIDE
     Indication: Skin cosmetic procedure
     Route: 023
     Dates: start: 20221009, end: 20221009

REACTIONS (2)
  - Injection site rash [None]
  - Product formulation issue [None]

NARRATIVE: CASE EVENT DATE: 20221009
